APPROVED DRUG PRODUCT: TRANEXAMIC ACID
Active Ingredient: TRANEXAMIC ACID
Strength: 100MG/ML
Dosage Form/Route: INJECTABLE;INJECTION
Application: A207239 | Product #001 | TE Code: AP
Applicant: GLAND PHARMA LTD
Approved: Feb 13, 2017 | RLD: No | RS: No | Type: RX